FAERS Safety Report 26157861 (Version 1)
Quarter: 2025Q4

REPORT INFORMATION
  Report Type: Spontaneous
  Country: US (occurrence: None)
  Receive Date: 20251213
  Receipt Date: 20251213
  Transmission Date: 20260118
  Serious: Yes (Other)
  Sender: FDA-CTU
  Company Number: None

PATIENT
  Age: 79 Year
  Sex: Female
  Weight: 66.15 kg

DRUGS (1)
  1. EVENITY [Suspect]
     Active Substance: ROMOSOZUMAB-AQQG
     Indication: Osteoporosis
     Dosage: OTHER FREQUENCY : 105 MG 2 Q 4 WKS.;
     Route: 058
     Dates: start: 20250530

REACTIONS (1)
  - Tendonitis [None]

NARRATIVE: CASE EVENT DATE: 20251204
